FAERS Safety Report 20877554 (Version 2)
Quarter: 2024Q1

REPORT INFORMATION
  Report Type: Spontaneous
  Country: US (occurrence: US)
  Receive Date: 20220526
  Receipt Date: 20240208
  Transmission Date: 20240410
  Serious: No
  Sender: FDA-Public Use
  Company Number: US-PFIZER INC-202200742454

PATIENT
  Age: 71 Year

DRUGS (1)
  1. PAXLOVID [Suspect]
     Active Substance: NIRMATRELVIR\RITONAVIR
     Indication: COVID-19 treatment
     Dosage: UNK, 2X/DAY

REACTIONS (4)
  - Malaise [Unknown]
  - Paraesthesia oral [Unknown]
  - Dysgeusia [Unknown]
  - Product taste abnormal [Unknown]
